FAERS Safety Report 8322124-9 (Version None)
Quarter: 2012Q2

REPORT INFORMATION
  Report Type: 
  Country: None (occurrence: None)
  Receive Date: 20120430
  Receipt Date: 20120105
  Transmission Date: 20120825
  Serious: Yes (Hospitalization)
  Sender: FDA-Public Use
  Company Number: FR-ROCHE-1028111

PATIENT
  Sex: Male

DRUGS (11)
  1. VALGANCICLOVIR [Concomitant]
  2. PROGRAF [Concomitant]
  3. ZITHROMAX [Concomitant]
  4. VIRAZOLE [Suspect]
     Indication: RESPIRATORY SYNCYTIAL VIRUS INFECTION
     Route: 042
     Dates: start: 20111202, end: 20111204
  5. BACTRIM FORTE IM ROCHE [Concomitant]
     Dosage: 1 TABLET
  6. CACIT [Concomitant]
  7. MYCOPHENOLATE MOFETIL (CELLCEPT) [Suspect]
     Indication: LUNG TRANSPLANT
     Route: 042
     Dates: start: 20111001
  8. GANCICLOVIR SODIUM [Suspect]
     Indication: CYTOMEGALOVIRUS INFECTION
     Route: 042
     Dates: start: 20111202, end: 20111208
  9. PREDNISONE TAB [Concomitant]
  10. NEXIUM [Concomitant]
  11. VALGANCICLOVIR [Suspect]
     Indication: CYTOMEGALOVIRUS INFECTION
     Route: 048
     Dates: start: 20111001, end: 20111205

REACTIONS (1)
  - BONE MARROW FAILURE [None]
